FAERS Safety Report 8461111-7 (Version None)
Quarter: 2012Q2

REPORT INFORMATION
  Report Type: 
  Country: None (occurrence: None)
  Receive Date: 20120625
  Receipt Date: 20120620
  Transmission Date: 20120825
  Serious: Yes (Death, Hospitalization, Other)
  Sender: FDA-Public Use
  Company Number: BR-BRISTOL-MYERS SQUIBB COMPANY-16391211

PATIENT
  Age: 76 Year
  Sex: Female

DRUGS (11)
  1. ROCALTROL [Concomitant]
  2. CLONIDINE HYDROCHLORIDE [Concomitant]
  3. LEVOTHYROXINE SODIUM [Concomitant]
     Indication: HYPOTHYROIDISM
     Dosage: BEFORE JUL09
     Dates: start: 20090101
  4. LASIX [Concomitant]
     Dosage: HALF TAB
  5. ROSUVASTATIN [Concomitant]
  6. HUMULIN N [Concomitant]
     Indication: TYPE 2 DIABETES MELLITUS
     Route: 058
  7. LOSARTAN POTASSIUM [Concomitant]
  8. INSULIN [Concomitant]
  9. ONGLYZA [Suspect]
     Indication: TYPE 2 DIABETES MELLITUS
     Dosage: ONGLYZA TABS 5 MG
     Route: 048
     Dates: start: 20110517, end: 20110911
  10. ATENOLOL [Concomitant]
  11. CALCIUM-SANDOZ [Concomitant]
     Dosage: 1 TAB

REACTIONS (3)
  - RENAL IMPAIRMENT [None]
  - LUNG NEOPLASM MALIGNANT [None]
  - SUBGALEAL HAEMATOMA [None]
